FAERS Safety Report 5400681-X (Version None)
Quarter: 2007Q3

REPORT INFORMATION
  Report Type: 
  Country: None (occurrence: None)
  Receive Date: 20070730
  Receipt Date: 20070718
  Transmission Date: 20080115
  Serious: Yes (Disabling, Other)
  Sender: FDA-Public Use
  Company Number: JP-ELI_LILLY_AND_COMPANY-JP200704002499

PATIENT
  Age: 67 Year
  Sex: Male
  Weight: 58 kg

DRUGS (11)
  1. GEMZAR [Suspect]
     Indication: PANCREATIC CARCINOMA STAGE I
     Dosage: 1700 MG, OTHER
     Route: 042
     Dates: start: 20070524
  2. GEMZAR [Suspect]
     Dosage: 1700 MG, OTHER
     Route: 042
     Dates: start: 20060101
  3. DOGMATYL [Concomitant]
     Route: 065
  4. MEILAX [Concomitant]
     Dosage: UNK, UNKNOWN
     Route: 048
  5. NORVASC [Concomitant]
     Dosage: UNK, UNKNOWN
     Route: 048
  6. METHYCOBAL [Concomitant]
     Dosage: UNK, UNKNOWN
     Route: 065
  7. EVIPROSTAT                         /01150001/ [Concomitant]
     Dosage: UNK, UNKNOWN
     Route: 048
  8. CARNACULIN [Concomitant]
     Dosage: UNK, UNKNOWN
     Route: 048
  9. FAMOTIDINE [Concomitant]
     Route: 065
  10. HIBON [Concomitant]
     Dosage: UNK, UNKNOWN
     Route: 048
  11. PYDOXAL [Concomitant]
     Dosage: UNK, UNKNOWN
     Route: 065

REACTIONS (5)
  - CEREBRAL INFARCTION [None]
  - FLANK PAIN [None]
  - HEADACHE [None]
  - PLATELET COUNT DECREASED [None]
  - WHITE BLOOD CELL COUNT DECREASED [None]
